FAERS Safety Report 16332772 (Version 1)
Quarter: 2019Q2

REPORT INFORMATION
  Report Type: Spontaneous
  Country: US (occurrence: US)
  Receive Date: 20190520
  Receipt Date: 20190520
  Transmission Date: 20190711
  Serious: No
  Sender: FDA-Public Use
  Company Number: US-PFIZER INC-2019208246

PATIENT
  Age: 51 Year
  Sex: Male
  Weight: 65.77 kg

DRUGS (4)
  1. VIAGRA [Suspect]
     Active Substance: SILDENAFIL CITRATE
     Indication: IMMUNISATION
  2. VIAGRA [Suspect]
     Active Substance: SILDENAFIL CITRATE
     Indication: DEPRESSION
  3. VIAGRA [Suspect]
     Active Substance: SILDENAFIL CITRATE
     Indication: ERECTILE DYSFUNCTION
     Dosage: 100 MG, AS NEEDED
     Route: 048
  4. VIAGRA [Suspect]
     Active Substance: SILDENAFIL CITRATE
     Indication: PAIN
     Dosage: 25 MG, 1X/DAY

REACTIONS (3)
  - Drug effective for unapproved indication [Unknown]
  - Intentional product misuse [Unknown]
  - Muscle spasticity [Unknown]
